FAERS Safety Report 5036020-6 (Version None)
Quarter: 2006Q2

REPORT INFORMATION
  Report Type: 
  Country: None (occurrence: None)
  Receive Date: 20060526
  Receipt Date: 20051129
  Transmission Date: 20061013
  Serious: Yes (Disabling)
  Sender: FDA-Public Use
  Company Number: PHEH2005US12374

PATIENT
  Age: 91 Year
  Sex: Female

DRUGS (11)
  1. DEFEROXAMINE (DEFEROXAMINE ) SOLUTION FOR INFUSION [Suspect]
     Dosage: 2.5G 3X/WEEK
     Dates: start: 20050501, end: 20051001
  2. ATENOLOL [Concomitant]
  3. PRILOSEC [Concomitant]
  4. ANASTROZOLE [Concomitant]
  5. SPIRONOLACTONE [Concomitant]
  6. VITAMIN B6 [Concomitant]
  7. VITAMIN E [Concomitant]
  8. MIACALCIN (CALCITONIN, SALMON) NASAL SPRAY [Concomitant]
  9. CALCIUM (CALCIUM) [Concomitant]
  10. COLACE (DOCUSATE SODIUM) [Concomitant]
  11. FUROSEMIDE [Concomitant]

REACTIONS (2)
  - RETINAL DEGENERATION [None]
  - RETINITIS PIGMENTOSA [None]
